FAERS Safety Report 25941007 (Version 2)
Quarter: 2025Q4

REPORT INFORMATION
  Report Type: Report from Study
  Country: US (occurrence: US)
  Receive Date: 20251020
  Receipt Date: 20251118
  Transmission Date: 20260118
  Serious: No
  Sender: MALLINCKRODT
  Company Number: US-MALLINCKRODT-MNK202506494

PATIENT
  Age: 37 Year
  Sex: Female
  Weight: 145 kg

DRUGS (1)
  1. CORTICOTROPIN [Suspect]
     Active Substance: CORTICOTROPIN
     Indication: Dermatomyositis
     Dosage: 80 UNITS
     Route: 058
     Dates: start: 20251015

REACTIONS (6)
  - Skin discolouration [Recovering/Resolving]
  - Somnolence [Unknown]
  - Pain [Unknown]
  - Peripheral swelling [Recovering/Resolving]
  - Injection site pain [Unknown]
  - Asthenia [Unknown]

NARRATIVE: CASE EVENT DATE: 20251001
